FAERS Safety Report 15450381 (Version 1)
Quarter: 2018Q4

REPORT INFORMATION
  Report Type: Spontaneous
  Country: JP (occurrence: JP)
  Receive Date: 20181001
  Receipt Date: 20181001
  Transmission Date: 20190204
  Serious: Yes (Other)
  Sender: FDA-Public Use
  Company Number: JP-SUN PHARMACEUTICAL INDUSTRIES LTD-2018R1-176700

PATIENT
  Age: 73 Year
  Sex: Male

DRUGS (2)
  1. DOCETAXEL. [Suspect]
     Active Substance: DOCETAXEL
     Indication: ANGIOSARCOMA METASTATIC
     Dosage: 25 MG/M2, FIVE CYCLES OF DOCETAXEL (DOC) FOR 4 WEEKS EACH
     Route: 042
     Dates: start: 201402, end: 201406
  2. PACLITAXEL. [Suspect]
     Active Substance: PACLITAXEL
     Indication: ANGIOSARCOMA METASTATIC
     Dosage: 4 CYCLES OF PTX, 65 MG/M2 WEEKLY
     Route: 042
     Dates: start: 201306, end: 201309

REACTIONS (2)
  - Interstitial lung disease [Not Recovered/Not Resolved]
  - Drug ineffective [Unknown]
